FAERS Safety Report 10967025 (Version 1)
Quarter: 2015Q1

REPORT INFORMATION
  Report Type: Spontaneous
  Country: US (occurrence: None)
  Receive Date: 20150327
  Receipt Date: 20150327
  Transmission Date: 20150721
  Serious: Yes (Other)
  Sender: FDA-Public Use
  Company Number: None

PATIENT
  Age: 63 Year
  Sex: Female
  Weight: 57.15 kg

DRUGS (1)
  1. GABAPENTIN 300 MG [Suspect]
     Active Substance: GABAPENTIN
     Indication: DIABETIC NEUROPATHY
     Dosage: 1-2 PILLS TID ORAL
     Route: 048
     Dates: start: 20141001, end: 20141124

REACTIONS (2)
  - Fall [None]
  - Somnolence [None]

NARRATIVE: CASE EVENT DATE: 20141124
